FAERS Safety Report 5807595-1 (Version None)
Quarter: 2008Q3

REPORT INFORMATION
  Report Type: 
  Country: None (occurrence: None)
  Receive Date: 20080711
  Receipt Date: 20080703
  Transmission Date: 20090109
  Serious: Yes (Hospitalization)
  Sender: FDA-Public Use
  Company Number: FR-ABBOTT-08P-056-0461228-00

PATIENT
  Age: 64 Year
  Sex: Male

DRUGS (2)
  1. ERYTHROMYCIN [Suspect]
     Indication: LEGIONELLA INFECTION
     Dosage: 4 GRAMS DAILY, 1 GRAM FOUR TIMES PER DAY
     Route: 042
  2. LEVOFLOXACIN [Suspect]
     Indication: LEGIONELLA INFECTION
     Dosage: 1000MG DAILY, 500MG TWICE PER DAY
     Route: 048

REACTIONS (1)
  - ATRIOVENTRICULAR BLOCK [None]
